FAERS Safety Report 7354855-1 (Version None)
Quarter: 2011Q1

REPORT INFORMATION
  Report Type: 
  Country: None (occurrence: None)
  Receive Date: 20110307
  Receipt Date: 20110223
  Transmission Date: 20110831
  Serious: Yes (Hospitalization)
  Sender: FDA-Public Use
  Company Number: 028018

PATIENT
  Sex: Female

DRUGS (4)
  1. MADOPARK [Concomitant]
  2. NEUPRO [Suspect]
     Indication: PARKINSONISM
     Dosage: 4MG/24HRS TRANSDERMAL
     Route: 062
     Dates: start: 20101020
  3. AZILECT [Concomitant]
  4. MADOPARK QUICK [Concomitant]

REACTIONS (2)
  - THROMBOPHLEBITIS SUPERFICIAL [None]
  - SYNOVIAL CYST [None]
